FAERS Safety Report 5393892-3 (Version None)
Quarter: 2007Q3

REPORT INFORMATION
  Report Type: 
  Country: None (occurrence: None)
  Receive Date: 20070723
  Receipt Date: 20070715
  Transmission Date: 20080115
  Serious: Yes (Hospitalization)
  Sender: FDA-Public Use
  Company Number: B0480128A

PATIENT
  Age: 20 Year
  Sex: Female

DRUGS (1)
  1. ZYBAN [Suspect]
     Route: 065
     Dates: end: 20070709

REACTIONS (9)
  - CYANOSIS [None]
  - DECEREBRATION [None]
  - EPILEPSY [None]
  - LOSS OF CONSCIOUSNESS [None]
  - NERVOUSNESS [None]
  - RESPIRATORY ARREST [None]
  - SINUS TACHYCARDIA [None]
  - TONGUE BITING [None]
  - TREMOR [None]
